FAERS Safety Report 6731651-7 (Version None)
Quarter: 2010Q2

REPORT INFORMATION
  Report Type: 
  Country: None (occurrence: None)
  Receive Date: 20100517
  Receipt Date: 20100502
  Transmission Date: 20101027
  Serious: Yes (Hospitalization)
  Sender: FDA-Public Use
  Company Number: GB-DEXPHARM-20100538

PATIENT
  Age: 75 Year
  Sex: Female

DRUGS (3)
  1. OMEPRAZOLE [Suspect]
     Indication: PROPHYLAXIS AGAINST GASTROINTESTINAL ULCER
  2. PANTOPRAZOLE [Suspect]
     Indication: PROPHYLAXIS AGAINST GASTROINTESTINAL ULCER
     Dosage: 40 MG MILLIGRAM(S), SEP. DOSAGES/INTERVAL 1 IN 1 DAY
  3. BENDROFLUMETHIAZIDE [Concomitant]

REACTIONS (4)
  - HYPOCALCAEMIA [None]
  - HYPOMAGNESAEMIA [None]
  - LARYNGEAL OEDEMA [None]
  - PULMONARY OEDEMA [None]
